FAERS Safety Report 4932505-9 (Version None)
Quarter: 2006Q1

REPORT INFORMATION
  Report Type: 
  Country: None (occurrence: None)
  Receive Date: 20060303
  Receipt Date: 20051019
  Transmission Date: 20060701
  Serious: Yes (Hospitalization, Disabling)
  Sender: FDA-Public Use
  Company Number: US-MERCK-0510USA08393

PATIENT
  Age: 47 Year
  Sex: Female
  Weight: 64 kg

DRUGS (5)
  1. VIOXX [Suspect]
     Indication: INFLAMMATION
     Route: 048
     Dates: start: 20021201, end: 20040416
  2. IMURAN [Concomitant]
     Route: 065
  3. PREDNISONE [Concomitant]
     Route: 065
  4. MAXZIDE [Concomitant]
     Route: 065
  5. POTASSIUM (UNSPECIFIED) [Concomitant]
     Route: 065

REACTIONS (7)
  - AMNESIA [None]
  - CEREBROVASCULAR ACCIDENT [None]
  - DEAFNESS [None]
  - GASTROINTESTINAL DISORDER [None]
  - LUNG DISORDER [None]
  - OEDEMA PERIPHERAL [None]
  - THROMBOSIS [None]
